FAERS Safety Report 4680194-3 (Version None)
Quarter: 2005Q2

REPORT INFORMATION
  Report Type: 
  Country: None (occurrence: None)
  Receive Date: 20050531
  Receipt Date: 20041202
  Transmission Date: 20051028
  Serious: Yes (Hospitalization, Disabling)
  Sender: FDA-Public Use
  Company Number: NL-2004-034428

PATIENT
  Age: 61 Year
  Sex: Male
  Weight: 98 kg

DRUGS (5)
  1. QUADRAMET [Suspect]
     Dosage: 18.5 MBQ
     Dates: start: 20040907, end: 20040907
  2. QUADRAMET [Suspect]
     Dosage: 18.5 MBQ
     Dates: start: 20040921, end: 20040921
  3. ZOMETA [Suspect]
     Dosage: 4 MG, INTRAVENOUS
     Route: 042
     Dates: start: 20040919, end: 20040919
  4. ZOMETA [Suspect]
     Dosage: 4 MG, INTRAVENOUS
     Route: 042
     Dates: start: 20041019, end: 20041019
  5. ANALGESICS [Concomitant]

REACTIONS (7)
  - CONDITION AGGRAVATED [None]
  - DISEASE PROGRESSION [None]
  - DISSEMINATED INTRAVASCULAR COAGULATION [None]
  - HIP FRACTURE [None]
  - PAIN [None]
  - PULMONARY EMBOLISM [None]
  - THROMBOCYTOPENIA [None]
